FAERS Safety Report 15429059 (Version 3)
Quarter: 2018Q4

REPORT INFORMATION
  Report Type: Spontaneous
  Country: US (occurrence: US)
  Receive Date: 20180926
  Receipt Date: 20181105
  Transmission Date: 20190204
  Serious: No
  Sender: FDA-Public Use
  Company Number: US-PFIZER INC-2018387402

PATIENT
  Age: 53 Year
  Sex: Male

DRUGS (1)
  1. LYRICA [Suspect]
     Active Substance: PREGABALIN
     Indication: BACK PAIN
     Dosage: 300 MG DAILY (150 MG CAPSULE, TAKE 2 CAPSULES EVERY DAY AT BEDTIME FOR 90 DAYS)
     Route: 048

REACTIONS (2)
  - Product use issue [Unknown]
  - Tremor [Unknown]
